FAERS Safety Report 8088657-8 (Version None)
Quarter: 2012Q1

REPORT INFORMATION
  Report Type: 
  Country: None (occurrence: None)
  Receive Date: 20120128
  Receipt Date: 20110412
  Transmission Date: 20120608
  Serious: No
  Sender: FDA-Public Use
  Company Number: US-ABBOTT-11P-163-0718486-00

PATIENT
  Age: 39 Year
  Sex: Female

DRUGS (6)
  1. KLONOPIN [Concomitant]
     Indication: ANXIETY
  2. TRAZODONE HCL [Concomitant]
     Indication: INSOMNIA
     Dosage: AT NIGHT
  3. COUMADIN [Concomitant]
     Dosage: FOR 2 DAYS
  4. HUMIRA [Suspect]
     Indication: ARTHRITIS
     Dates: start: 20110408
  5. COUMADIN [Concomitant]
     Indication: PRODUCT USED FOR UNKNOWN INDICATION
     Dosage: X1 TABLET FOR 5 DAYS
  6. PRISTIQ [Concomitant]
     Indication: DEPRESSION
     Dosage: IN THE MORNING

REACTIONS (3)
  - SENSATION OF HEAVINESS [None]
  - FATIGUE [None]
  - FEELING HOT [None]
